FAERS Safety Report 17572515 (Version 3)
Quarter: 2023Q1

REPORT INFORMATION
  Report Type: Spontaneous
  Country: CA (occurrence: CA)
  Receive Date: 20200323
  Receipt Date: 20230130
  Transmission Date: 20230417
  Serious: Yes (Other)
  Sender: FDA-Public Use
  Company Number: CA-PFIZER INC-2018084719

PATIENT
  Age: 36 Year
  Sex: Male

DRUGS (7)
  1. IBRANCE [Suspect]
     Active Substance: PALBOCICLIB
     Indication: Breast cancer metastatic
     Dosage: 125 MG, DAILY FOR 21 DAYS, EVERY 28 DAYS
     Route: 048
     Dates: start: 20180411
  2. IBRANCE [Suspect]
     Active Substance: PALBOCICLIB
     Dosage: 100 MG
     Route: 048
  3. IBRANCE [Suspect]
     Active Substance: PALBOCICLIB
     Dosage: 75 MG, ONCE DAILY FOR 21 DAYS/28 DAY CYCLE
     Route: 048
  4. LETROZOLE [Concomitant]
     Active Substance: LETROZOLE
     Dosage: 2.5 MG, DAILY
     Route: 048
     Dates: start: 201802
  5. ELIGARD [Concomitant]
     Active Substance: LEUPROLIDE ACETATE
     Dosage: 22.5 MG, CYCLIC, (Q3MONTHS),
     Route: 058
  6. LEUPROLIDE [Concomitant]
     Active Substance: LEUPROLIDE
     Dosage: 22.5 MG, UNK, EVERY 3 MONTHS
     Route: 058
     Dates: start: 201601
  7. GONADORELIN DIACETATE TETRAHYDRATE [Concomitant]
     Active Substance: GONADORELIN DIACETATE TETRAHYDRATE
     Dosage: UNK

REACTIONS (8)
  - Myelosuppression [Unknown]
  - Neutropenia [Recovered/Resolved]
  - Thrombocytopenia [Recovered/Resolved]
  - Neutrophil count decreased [Unknown]
  - Haemoglobin decreased [Unknown]
  - Platelet count decreased [Unknown]
  - White blood cell count decreased [Unknown]
  - Product dose omission issue [Unknown]

NARRATIVE: CASE EVENT DATE: 20180401
